FAERS Safety Report 7064826-0 (Version None)
Quarter: 2010Q4

REPORT INFORMATION
  Report Type: 
  Country: None (occurrence: None)
  Receive Date: 20101027
  Receipt Date: 19870812
  Transmission Date: 20110411
  Serious: Yes (Death)
  Sender: FDA-Public Use
  Company Number: JP-ROCHE-870940004001

PATIENT
  Sex: Female
  Weight: 43 kg

DRUGS (13)
  1. ROCEPHIN [Suspect]
     Route: 042
     Dates: start: 19870128, end: 19870208
  2. DASEN [Concomitant]
     Route: 048
     Dates: start: 19860819, end: 19870211
  3. BISOLVON [Concomitant]
     Route: 048
     Dates: start: 19860819, end: 19870211
  4. OPHTHALM-K [Concomitant]
     Route: 048
     Dates: start: 19860819, end: 19870211
  5. EXIREL [Concomitant]
     Route: 048
     Dates: start: 19860819, end: 19870211
  6. MARZULENE [Concomitant]
     Route: 048
     Dates: start: 19860821, end: 19870228
  7. NEUER [Concomitant]
     Route: 048
     Dates: start: 19860821, end: 19870228
  8. FINALIN [Concomitant]
     Route: 048
     Dates: start: 19860821, end: 19870228
  9. HALCION [Concomitant]
     Route: 048
     Dates: start: 19860913, end: 19870211
  10. DEPAS [Concomitant]
     Route: 048
     Dates: start: 19870126, end: 19870211
  11. PONTAL [Concomitant]
     Route: 048
     Dates: start: 19870126, end: 19870211
  12. JUVELA NICOTINATE [Concomitant]
     Route: 048
     Dates: start: 19870126, end: 19870211
  13. NOLEPTAN [Concomitant]
     Route: 048
     Dates: start: 19860819, end: 19870211

REACTIONS (2)
  - DEATH [None]
  - DIARRHOEA [None]
